FAERS Safety Report 9494023 (Version 1)
Quarter: 2013Q3

REPORT INFORMATION
  Report Type: Spontaneous
  Country: IT (occurrence: None)
  Receive Date: 20130827
  Receipt Date: 20130827
  Transmission Date: 20140515
  Serious: Yes (Hospitalization)
  Sender: FDA-Public Use
  Company Number: GER/UKI/13/0034121

PATIENT
  Age: 27 Year
  Sex: Male

DRUGS (4)
  1. QUETIAPINE (QUETIAPINE) [Suspect]
     Indication: PRODUCT USED FOR UNKNOWN INDICATION
     Route: 048
     Dates: start: 20130808, end: 20130808
  2. FLUNOX (FLURAZEPAM HYDROCHLORIDE) [Suspect]
     Indication: PRODUCT USED FOR UNKNOWN INDICATION
     Dates: start: 20130808, end: 20130808
  3. ALCOHOL (ETHANOL) [Concomitant]
  4. DEPAKIN CHRONO [Suspect]
     Dates: start: 20130808, end: 20130808

REACTIONS (6)
  - Self-injurious ideation [None]
  - Drug abuse [None]
  - Sopor [None]
  - Speech disorder [None]
  - Facial bones fracture [None]
  - Fall [None]
